FAERS Safety Report 24575196 (Version 2)
Quarter: 2024Q4

REPORT INFORMATION
  Report Type: Spontaneous
  Country: US (occurrence: US)
  Receive Date: 20241104
  Receipt Date: 20241231
  Transmission Date: 20250114
  Serious: No
  Sender: MERCK
  Company Number: US-009507513-2410USA002465

PATIENT
  Sex: Female

DRUGS (7)
  1. WINREVAIR [Suspect]
     Active Substance: SOTATERCEPT-CSRK
     Dosage: UNK
     Dates: start: 2024
  2. ORENITRAM [Suspect]
     Active Substance: TREPROSTINIL
     Indication: Pulmonary arterial hypertension
     Dosage: UNK
     Route: 048
     Dates: start: 202401
  3. ORENITRAM [Suspect]
     Active Substance: TREPROSTINIL
     Dosage: 6 MG (1 TABLET OF 5 MG AND 1 MG EACH), TID; STRENGTH: 1 MG
     Route: 048
     Dates: start: 202401
  4. ORENITRAM [Suspect]
     Active Substance: TREPROSTINIL
     Dosage: 6 MG (1 TABLET OF 5 MG AND 1 MG EACH), TID; STRENGTH: 1 MG; STRENGTH: 5 MG
     Route: 048
     Dates: start: 202401
  5. AMBRISENTAN [Concomitant]
     Active Substance: AMBRISENTAN
     Dosage: UNK
  6. ADEMPAS [Concomitant]
     Active Substance: RIOCIGUAT
     Dosage: UNK
  7. ZOFRAN [Concomitant]
     Active Substance: ONDANSETRON HYDROCHLORIDE
     Indication: Nausea
     Dosage: UNK

REACTIONS (2)
  - Weight decreased [Unknown]
  - Nausea [Not Recovered/Not Resolved]

NARRATIVE: CASE EVENT DATE: 20240101
